FAERS Safety Report 24235978 (Version 1)
Quarter: 2024Q3

REPORT INFORMATION
  Report Type: Spontaneous
  Country: US (occurrence: US)
  Receive Date: 20240822
  Receipt Date: 20240822
  Transmission Date: 20241017
  Serious: No
  Sender: BIONPHARMA
  Company Number: US-Bion-013701

PATIENT
  Age: 3 Year
  Sex: Male

DRUGS (1)
  1. CALAMINE LOTION [Suspect]
     Active Substance: CALAMINE LOTION
     Indication: Product used for unknown indication
     Route: 048

REACTIONS (1)
  - Accidental exposure to product by child [Unknown]
